FAERS Safety Report 8480814-1 (Version None)
Quarter: 2012Q3

REPORT INFORMATION
  Report Type: 
  Country: None (occurrence: None)
  Receive Date: 20120702
  Receipt Date: 20120621
  Transmission Date: 20120928
  Serious: Yes (Hospitalization, Other)
  Sender: FDA-Public Use
  Company Number: US-BAYER-2012-018949

PATIENT
  Age: 33 Year
  Sex: Female
  Weight: 62.585 kg

DRUGS (5)
  1. TRETINOIN [Concomitant]
     Dosage: UNK
     Route: 061
  2. YAZ [Suspect]
     Indication: ACNE
  3. YASMIN [Suspect]
     Indication: ACNE
  4. YASMIN [Suspect]
     Indication: CONTRACEPTION
     Dosage: UNK
     Dates: start: 20020101, end: 20070206
  5. YAZ [Suspect]
     Indication: CONTRACEPTION
     Dosage: UNK
     Dates: start: 20070911, end: 20080303

REACTIONS (7)
  - ADRENAL DISORDER [None]
  - PAIN [None]
  - CHOLELITHIASIS [None]
  - THYROID DISORDER [None]
  - DEPRESSION [None]
  - CHOLECYSTITIS CHRONIC [None]
  - CARDIAC MURMUR [None]
